FAERS Safety Report 7278608-8 (Version None)
Quarter: 2011Q1

REPORT INFORMATION
  Report Type: 
  Country: None (occurrence: None)
  Receive Date: 20110207
  Receipt Date: 20110127
  Transmission Date: 20110831
  Serious: Yes (Hospitalization)
  Sender: FDA-Public Use
  Company Number: BR-GENZYME-RENA-1001064

PATIENT
  Sex: Male

DRUGS (5)
  1. RENAGEL [Suspect]
     Indication: HYPERPHOSPHATAEMIA
     Route: 048
  2. CALCIUM [Concomitant]
     Indication: PRODUCT USED FOR UNKNOWN INDICATION
  3. NORIPURUM [Concomitant]
     Indication: PRODUCT USED FOR UNKNOWN INDICATION
  4. HEMAX [Concomitant]
     Indication: PRODUCT USED FOR UNKNOWN INDICATION
  5. FABRAZYME [Suspect]
     Indication: FABRY'S DISEASE
     Dosage: UNK

REACTIONS (6)
  - RENAL FAILURE [None]
  - MALAISE [None]
  - ABDOMINAL PAIN [None]
  - FEELING COLD [None]
  - TREMOR [None]
  - PAIN [None]
